FAERS Safety Report 5040684-0 (Version None)
Quarter: 2006Q2

REPORT INFORMATION
  Report Type: 
  Country: None (occurrence: None)
  Receive Date: 20060629
  Receipt Date: 20060629
  Transmission Date: 20061013
  Serious: Yes (Life-Threatening)
  Sender: FDA-Public Use
  Company Number: None

PATIENT
  Age: 16 Year
  Sex: Male
  Weight: 77 kg

DRUGS (3)
  1. SEROQUEL [Suspect]
     Indication: BIPOLAR DISORDER
     Dosage: 1000 MG/DAY PO
     Route: 048
     Dates: start: 20050501
  2. DEPAKOTE [Concomitant]
  3. AMANTADINE HCL [Concomitant]

REACTIONS (7)
  - AGITATION [None]
  - CONFUSIONAL STATE [None]
  - HAEMODIALYSIS [None]
  - HAEMOLYTIC ANAEMIA [None]
  - HYPOGLYCAEMIA [None]
  - RENAL FAILURE ACUTE [None]
  - THROMBOTIC THROMBOCYTOPENIC PURPURA [None]
